FAERS Safety Report 22242411 (Version 1)
Quarter: 2023Q2

REPORT INFORMATION
  Report Type: Spontaneous
  Country: US (occurrence: US)
  Receive Date: 20230422
  Receipt Date: 20230422
  Transmission Date: 20230722
  Serious: Yes (Hospitalization)
  Sender: FDA-Public Use
  Company Number: US-drreddys-LIT/USA/23/0163882

PATIENT
  Age: 9 Decade
  Sex: Male

DRUGS (2)
  1. LENALIDOMIDE [Suspect]
     Active Substance: LENALIDOMIDE
     Indication: Plasma cell myeloma
  2. WARFARIN [Suspect]
     Active Substance: WARFARIN
     Indication: Atrial fibrillation

REACTIONS (5)
  - Histoplasmosis disseminated [Recovered/Resolved]
  - Impaired quality of life [Unknown]
  - Tachycardia [Unknown]
  - Weight decreased [Recovering/Resolving]
  - Hypotension [Unknown]
